FAERS Safety Report 11439638 (Version 1)
Quarter: 2015Q3

REPORT INFORMATION
  Report Type: Spontaneous
  Country: None (occurrence: None)
  Receive Date: 20150828
  Receipt Date: 20150828
  Transmission Date: 20151125
  Serious: Yes (Hospitalization)
  Sender: FDA-Public Use
  Company Number: CC400254956

PATIENT
  Age: 7 Month
  Sex: Male
  Weight: 9.65 kg

DRUGS (1)
  1. SODIUM CHLORIDE. [Suspect]
     Active Substance: SODIUM CHLORIDE
     Indication: GASTROENTERITIS

REACTIONS (7)
  - Seizure [None]
  - Coma [None]
  - Cardiac arrest [None]
  - Accidental overdose [None]
  - Nervous system disorder [None]
  - Hypernatraemia [None]
  - Pyrexia [None]

NARRATIVE: CASE EVENT DATE: 20150406
